FAERS Safety Report 8855071 (Version 2)
Quarter: 2012Q4

REPORT INFORMATION
  Report Type: 
  Country: US (occurrence: US)
  Receive Date: 20121023
  Receipt Date: 20121121
  Transmission Date: 20130627
  Serious: Yes (Other)
  Sender: FDA-Public Use
  Company Number: US-PFIZER INC-2012261770

PATIENT
  Sex: Female

DRUGS (3)
  1. CELEBREX [Suspect]
     Dosage: UNK
  2. PREMPRO [Suspect]
     Dosage: UNK
  3. LYRICA [Suspect]
     Dosage: UNK

REACTIONS (3)
  - Back disorder [Unknown]
  - Cough [Unknown]
  - Viral infection [Unknown]
